FAERS Safety Report 20062451 (Version 1)
Quarter: 2021Q4

REPORT INFORMATION
  Report Type: Spontaneous
  Country: NL (occurrence: NL)
  Receive Date: 20211112
  Receipt Date: 20211112
  Transmission Date: 20220303
  Serious: Yes (Life-Threatening, Hospitalization, Other)
  Sender: FDA-Public Use
  Company Number: NL-GLAXOSMITHKLINE-NLCH2021053130

PATIENT

DRUGS (2)
  1. ACETAMINOPHEN [Suspect]
     Active Substance: ACETAMINOPHEN
     Indication: Pain
     Dosage: UNK
  2. DICLOFENAC DIETHYLAMINE [Suspect]
     Active Substance: DICLOFENAC DIETHYLAMINE
     Indication: Pain
     Dosage: UNK

REACTIONS (11)
  - Pain in extremity [Unknown]
  - Pain [Unknown]
  - Syncope [Unknown]
  - Condition aggravated [Unknown]
  - Sleep disorder [Unknown]
  - Sleep apnoea syndrome [Unknown]
  - Incontinence [Unknown]
  - Hyperhidrosis [Unknown]
  - Fatigue [Unknown]
  - Urinary incontinence [Unknown]
  - Drug ineffective [Unknown]
